FAERS Safety Report 8780139 (Version 1)
Quarter: 2012Q4

REPORT INFORMATION
  Report Type: Spontaneous
  Country: US (occurrence: None)
  Receive Date: 20120829
  Receipt Date: 20120829
  Transmission Date: 20130627
  Serious: Yes (Other)
  Sender: FDA-Public Use
  Company Number: AUR-APL-2012-03652

PATIENT
  Age: 48 Year
  Sex: Female
  Weight: 147 kg

DRUGS (18)
  1. LISINOPRIL [Suspect]
     Indication: DRUG USE FOR UNKNOWN INDICATION
     Dates: end: 201208
  2. TIKOSYN [Suspect]
     Indication: ATRIAL FIBRILLATION
     Dates: start: 200909
  3. POTASSIUM CHLORIDE [Suspect]
     Indication: DRUG USE FOR UNKNOWN INDICATION
     Dates: end: 201208
  4. LASIX (FUROSEMIDE) [Suspect]
     Indication: DRUG USE FOR UNKNOWN INDICATION
     Dates: end: 201208
  5. COUMADIN (WARFARIN SODIUM) [Concomitant]
  6. HUMULIN N (INSULIN INJECTION, ISOPHANE) [Concomitant]
  7. GABAPENTIN (GABAPENTIN) [Concomitant]
  8. LIPITOR (ATORVASTATIN CALCIIUM) [Concomitant]
  9. MAGNESIUM OXIDE (MAGNESIUM OXIDE) [Concomitant]
  10. EDARBI [Concomitant]
  11. VITAMIN D (ERGOCALCIFEROL) [Concomitant]
  12. BABY ASPIRIN (ACETYLSALICYLIC ACID) [Concomitant]
  13. AMLODIPINE (AMLODIPINE) [Concomitant]
  14. SPIRIVA (TIOTROPIUM BROMIDE) [Concomitant]
  15. FORMOTEROL FUMARATE/MOMETASONE FUROATE [Concomitant]
  16. HUMULIN R (INSULIN HUMAN) [Concomitant]
  17. MELATONIN (MELATONIN) [Concomitant]
  18. ORTHO THYROID (THYROID) [Concomitant]

REACTIONS (4)
  - Blood potassium increased [None]
  - Blood creatinine increased [None]
  - Vitamin B1 increased [None]
  - Glomerular filtration rate decreased [None]
